FAERS Safety Report 6647495-0 (Version None)
Quarter: 2010Q1

REPORT INFORMATION
  Report Type: 
  Country: None (occurrence: None)
  Receive Date: 20100323
  Receipt Date: 20100315
  Transmission Date: 20100710
  Serious: Yes (Death, Hospitalization)
  Sender: FDA-Public Use
  Company Number: JP-ROCHE-690035

PATIENT
  Sex: Male

DRUGS (6)
  1. ACTEMRA [Suspect]
     Indication: POLYARTERITIS NODOSA
     Route: 042
     Dates: start: 20090515
  2. ACTEMRA [Suspect]
     Route: 042
     Dates: start: 20091001
  3. PREDONINE [Suspect]
     Indication: POLYARTERITIS NODOSA
     Dosage: DOSE DECREASED. DOSE FORM: PERORAL AGENT.
     Route: 048
     Dates: end: 20090101
  4. PREDONINE [Suspect]
     Dosage: FORM: PERORAL AGENT.
     Route: 048
     Dates: start: 20090101
  5. PREDONINE [Suspect]
     Dosage: STARTED ON AN UNKNOWN DATE IN 2010.
     Route: 042
  6. ALENDRONATE SODIUM [Concomitant]
     Dosage: DRUG NAME REPORTED AS ALENDRONATE SODIUM HYDRATE(ALENDRONATE SODIUM HYDRATE)
     Route: 048

REACTIONS (4)
  - ACUTE RESPIRATORY DISTRESS SYNDROME [None]
  - PANCREATITIS NECROTISING [None]
  - PERITONITIS [None]
  - RESPIRATORY FAILURE [None]
